FAERS Safety Report 25250102 (Version 1)
Quarter: 2025Q2

REPORT INFORMATION
  Report Type: Spontaneous
  Country: BR (occurrence: BR)
  Receive Date: 20250429
  Receipt Date: 20250429
  Transmission Date: 20250716
  Serious: Yes (Other)
  Sender: ACCORD
  Company Number: BR-Accord-481005

PATIENT
  Age: 83 Year
  Sex: Female
  Weight: 67.3 kg

DRUGS (15)
  1. PACLITAXEL [Suspect]
     Active Substance: PACLITAXEL
     Indication: Invasive breast carcinoma
     Route: 042
     Dates: start: 20231220, end: 20231220
  2. DEXAMETHASONE [Concomitant]
     Active Substance: DEXAMETHASONE
     Indication: Chemotherapy
     Route: 042
     Dates: start: 20231220, end: 20231220
  3. DIPHENHYDRAMINE [Concomitant]
     Active Substance: DIPHENHYDRAMINE
     Indication: Chemotherapy
     Route: 042
     Dates: start: 20231220, end: 20231220
  4. ONDANSETRON [Concomitant]
     Active Substance: ONDANSETRON
     Indication: Chemotherapy
     Route: 042
     Dates: start: 20231220, end: 20231220
  5. PANTOPRAZOLE [Concomitant]
     Active Substance: PANTOPRAZOLE
  6. LINAGLIPTIN [Concomitant]
     Active Substance: LINAGLIPTIN
  7. GLIFAGE [Concomitant]
     Active Substance: METFORMIN HYDROCHLORIDE
  8. GLICLAZIDE [Concomitant]
     Active Substance: GLICLAZIDE
  9. CILOSTAZOL [Concomitant]
     Active Substance: CILOSTAZOL
  10. BENSERAZIDE\LEVODOPA [Concomitant]
     Active Substance: BENSERAZIDE\LEVODOPA
  11. ATENOLOL [Concomitant]
     Active Substance: ATENOLOL
  12. VITAMIN D [Concomitant]
     Active Substance: VITAMIN D NOS
  13. QUETIAPINE [Concomitant]
     Active Substance: QUETIAPINE
  14. SIMVASTATIN [Concomitant]
     Active Substance: SIMVASTATIN
  15. DEXAMETHASONE [Concomitant]
     Active Substance: DEXAMETHASONE
     Indication: Chemotherapy
     Route: 048
     Dates: start: 20231219, end: 20231220

REACTIONS (3)
  - Dyspnoea [Recovered/Resolved]
  - Chest discomfort [Recovered/Resolved]
  - Flushing [Recovered/Resolved]

NARRATIVE: CASE EVENT DATE: 20231220
